FAERS Safety Report 20042263 (Version 1)
Quarter: 2021Q4

REPORT INFORMATION
  Report Type: Spontaneous
  Country: JP (occurrence: JP)
  Receive Date: 20211108
  Receipt Date: 20211108
  Transmission Date: 20220303
  Serious: Yes (Other)
  Sender: FDA-Public Use
  Company Number: JP-SUN PHARMACEUTICAL INDUSTRIES LTD-2021RR-316271

PATIENT
  Age: 62 Year
  Sex: Female
  Weight: 94.8 kg

DRUGS (1)
  1. ASPIRIN [Suspect]
     Active Substance: ASPIRIN
     Indication: Ischaemic stroke
     Dosage: UNK
     Route: 065

REACTIONS (1)
  - Renal haematoma [Unknown]
